FAERS Safety Report 7793556-2 (Version None)
Quarter: 2011Q4

REPORT INFORMATION
  Report Type: 
  Country: None (occurrence: None)
  Receive Date: 20111003
  Receipt Date: 20110926
  Transmission Date: 20120403
  Serious: Yes (Other)
  Sender: FDA-Public Use
  Company Number: PHHY2011JP81768

PATIENT
  Sex: Female

DRUGS (3)
  1. METOPIRONE [Suspect]
     Indication: CUSHING'S SYNDROME
     Dosage: 3000 MG, DAILY
     Route: 048
  2. LANSOPRAZOLE [Suspect]
     Dosage: UNK UKN, UNK
     Route: 048
  3. METOPIRONE [Suspect]
     Dosage: 1500 MG, DAILY
     Route: 048

REACTIONS (2)
  - GAMMA-GLUTAMYLTRANSFERASE INCREASED [None]
  - LIVER FUNCTION TEST ABNORMAL [None]
